FAERS Safety Report 9173706 (Version 1)
Quarter: 2013Q1

REPORT INFORMATION
  Report Type: Spontaneous
  Country: TW (occurrence: TW)
  Receive Date: 20130320
  Receipt Date: 20130320
  Transmission Date: 20140127
  Serious: Yes (Hospitalization)
  Sender: FDA-Public Use
  Company Number: TW-ASTELLAS-2013JP003978

PATIENT
  Age: 83 Year
  Sex: Female

DRUGS (3)
  1. MYCAMINE [Suspect]
     Indication: FUNGAL INFECTION
     Dosage: 100 MG, UID/QD
     Route: 042
     Dates: start: 20130305
  2. MEROPENEM [Suspect]
     Indication: PNEUMONIA
     Dosage: 1000 MG, Q8 HOURS
     Route: 042
     Dates: start: 20130307
  3. TEICOPLANIN [Suspect]
     Indication: PNEUMONIA
     Dosage: 400 MG, UID/QD
     Route: 042
     Dates: start: 20130307

REACTIONS (1)
  - White blood cell count decreased [Unknown]
